FAERS Safety Report 5749508-7 (Version None)
Quarter: 2008Q2

REPORT INFORMATION
  Report Type: 
  Country: None (occurrence: None)
  Receive Date: 20080527
  Receipt Date: 20080514
  Transmission Date: 20081010
  Serious: Yes (Other)
  Sender: FDA-Public Use
  Company Number: B0521267A

PATIENT
  Age: 14 Year
  Sex: Male

DRUGS (1)
  1. ATRIANCE [Suspect]
     Route: 042

REACTIONS (2)
  - ACUTE LEUKAEMIA [None]
  - TRANSAMINASES INCREASED [None]
